FAERS Safety Report 13455998 (Version 2)
Quarter: 2017Q2

REPORT INFORMATION
  Report Type: Spontaneous
  Country: US (occurrence: US)
  Receive Date: 20170419
  Receipt Date: 20170420
  Transmission Date: 20170830
  Serious: Yes (Hospitalization, Other)
  Sender: FDA-Public Use
  Company Number: US-UNITED THERAPEUTICS-UTC-026523

PATIENT
  Age: 17 Year
  Sex: Male

DRUGS (4)
  1. TYVASO [Suspect]
     Active Substance: TREPROSTINIL
     Indication: PULMONARY ARTERIAL HYPERTENSION
     Dosage: 54 ?G, QID
     Dates: start: 20100227
  2. REMODULIN [Suspect]
     Active Substance: TREPROSTINIL
     Indication: PULMONARY ARTERIAL HYPERTENSION
     Dosage: 0.024 ?G/KG, CONTINUING
     Route: 041
     Dates: start: 2010
  3. SILDENAFIL. [Concomitant]
     Active Substance: SILDENAFIL
     Indication: PRODUCT USED FOR UNKNOWN INDICATION
  4. BOSENTAN. [Concomitant]
     Active Substance: BOSENTAN
     Indication: PULMONARY ARTERIAL HYPERTENSION

REACTIONS (6)
  - Pleural effusion [Unknown]
  - Acute chest syndrome [Unknown]
  - Right ventricular failure [Unknown]
  - Pulmonary hypertension [Recovered/Resolved]
  - Reperfusion injury [Recovering/Resolving]
  - Pulmonary veno-occlusive disease [Recovered/Resolved]

NARRATIVE: CASE EVENT DATE: 2010
